FAERS Safety Report 9285955 (Version 2)
Quarter: 2013Q2

REPORT INFORMATION
  Report Type: Report from Study
  Country: DE (occurrence: DE)
  Receive Date: 20130513
  Receipt Date: 20130523
  Transmission Date: 20140414
  Serious: Yes (Hospitalization)
  Sender: FDA-Public Use
  Company Number: DE-ROCHE-1218477

PATIENT
  Age: 67 Year
  Sex: 0
  Weight: 95 kg

DRUGS (5)
  1. BEVACIZUMAB [Suspect]
     Indication: SMALL INTESTINE CARCINOMA
     Dosage: LAST DOSE OF DRUG BEFORE SAE ON 03/APR/2013.
     Route: 042
     Dates: start: 20130220, end: 20130403
  2. CAPECITABINE [Concomitant]
     Indication: COLON CANCER
     Route: 048
     Dates: start: 20130220
  3. IRINOTECAN [Concomitant]
     Indication: COLON CANCER
     Route: 042
     Dates: start: 20130220
  4. CLEXANE [Concomitant]
     Indication: DEEP VEIN THROMBOSIS
     Route: 058
  5. PANTOZOL [Concomitant]
     Indication: PROPHYLAXIS
     Route: 048

REACTIONS (6)
  - Haematuria [Recovered/Resolved]
  - Lower gastrointestinal haemorrhage [Recovered/Resolved]
  - Abdominal pain [Recovered/Resolved]
  - Hypokalaemia [Recovered/Resolved]
  - Cystitis haemorrhagic [Recovered/Resolved]
  - Gastrointestinal oedema [Unknown]
